FAERS Safety Report 5116354-7 (Version None)
Quarter: 2006Q3

REPORT INFORMATION
  Report Type: 
  Country: None (occurrence: None)
  Receive Date: 20060928
  Receipt Date: 20060918
  Transmission Date: 20061208
  Serious: Yes (Other)
  Sender: FDA-Public Use
  Company Number: PHFR2006GB02840

PATIENT
  Age: 78 Year
  Sex: Female

DRUGS (9)
  1. CALCITONIN-SALMON [Suspect]
     Indication: OSTEOPOROSIS
     Dosage: 1 DF, QD
     Route: 045
     Dates: start: 20060516, end: 20060710
  2. ADIZEM [Concomitant]
     Indication: HYPERTENSION
     Dosage: 240 MG, QD
     Route: 048
  3. AMITRIPTYLINE HCL [Concomitant]
     Indication: PAIN
     Dosage: 10 MG, QD
     Route: 048
  4. BENDROFLUAZIDE [Concomitant]
     Indication: HYPERTENSION
     Dosage: 2.5 MG, QD
     Route: 048
  5. CELEBREX [Concomitant]
     Indication: PAIN
     Dosage: 200 MG, QD
     Route: 048
  6. CO-PROXAMOL [Concomitant]
     Indication: PAIN
     Dosage: 2 DF, QID
     Route: 048
  7. METHOTREXATE [Concomitant]
     Indication: ANKYLOSING SPONDYLITIS
     Dosage: 10 MG, QD
     Route: 048
     Dates: start: 20050101
  8. RAMIPRIL [Concomitant]
     Indication: HYPERTENSION
     Dosage: 10 MG, QD
     Route: 048
  9. RANITIDINE [Concomitant]
     Dosage: 150 MG, BID
     Route: 048

REACTIONS (3)
  - BLOOD CREATININE INCREASED [None]
  - BLOOD UREA INCREASED [None]
  - RENAL FAILURE [None]
